FAERS Safety Report 15652884 (Version 5)
Quarter: 2020Q1

REPORT INFORMATION
  Report Type: Report from Study
  Country: FR (occurrence: FR)
  Receive Date: 20181123
  Receipt Date: 20200129
  Transmission Date: 20200409
  Serious: Yes (Other)
  Sender: FDA-Public Use
  Company Number: PHHY2018FR161746

PATIENT
  Age: 56 Year
  Sex: Female
  Weight: 61.6 kg

DRUGS (12)
  1. ADOPORT [Suspect]
     Active Substance: TACROLIMUS
     Dosage: 5 MG, UNKNOWN
     Route: 048
     Dates: start: 20181114, end: 20181124
  2. BROMAZEPAM [Concomitant]
     Active Substance: BROMAZEPAM
     Indication: PRODUCT USED FOR UNKNOWN INDICATION
     Dosage: UNK
     Route: 065
     Dates: start: 20181027
  3. PENTACARINAT [Concomitant]
     Active Substance: PENTAMIDINE ISETHIONATE
     Indication: PRODUCT USED FOR UNKNOWN INDICATION
     Dosage: UNK
     Route: 065
     Dates: start: 20181109
  4. ADOPORT [Suspect]
     Active Substance: TACROLIMUS
     Dosage: 6 MG, UNKNOWN
     Route: 048
     Dates: start: 20181028, end: 20181114
  5. PREDNISONE. [Concomitant]
     Active Substance: PREDNISONE
     Indication: PRODUCT USED FOR UNKNOWN INDICATION
     Dosage: UNK
     Route: 065
     Dates: start: 20181027
  6. ADOPORT [Suspect]
     Active Substance: TACROLIMUS
     Indication: RENAL TRANSPLANT
     Dosage: 8 MG, UNKNOWN
     Route: 048
     Dates: start: 20181026, end: 20181028
  7. ADOPORT [Suspect]
     Active Substance: TACROLIMUS
     Dosage: 4 MG, UNKNOWN
     Route: 048
     Dates: start: 20181124, end: 20181201
  8. ADOPORT [Suspect]
     Active Substance: TACROLIMUS
     Dosage: 3 MG, UNKNOWN
     Route: 048
     Dates: start: 20181201, end: 20190112
  9. ADOPORT [Suspect]
     Active Substance: TACROLIMUS
     Dosage: 2 MG, UNKNOWN
     Route: 048
     Dates: start: 20190112
  10. SALBUTAMOL [Concomitant]
     Active Substance: ALBUTEROL
     Indication: PRODUCT USED FOR UNKNOWN INDICATION
     Dosage: UNK
     Route: 065
     Dates: start: 20181109
  11. CELLCEPT [Concomitant]
     Active Substance: MYCOPHENOLATE MOFETIL\MYCOPHENOLATE MOFETIL HYDROCHLORIDE
     Indication: PRODUCT USED FOR UNKNOWN INDICATION
     Dosage: UNK
     Route: 065
     Dates: start: 20181026
  12. ESOMEPRAZOLE. [Concomitant]
     Active Substance: ESOMEPRAZOLE MAGNESIUM
     Indication: PRODUCT USED FOR UNKNOWN INDICATION
     Dosage: UNK
     Route: 065
     Dates: start: 20181102

REACTIONS (4)
  - Anaemia [Recovered/Resolved]
  - Cholestasis [Not Recovered/Not Resolved]
  - Diabetes mellitus [Recovered/Resolved]
  - Renal cyst infection [Recovered/Resolved]

NARRATIVE: CASE EVENT DATE: 20181028
